FAERS Safety Report 7050388-0 (Version None)
Quarter: 2010Q4

REPORT INFORMATION
  Report Type: 
  Country: None (occurrence: None)
  Receive Date: 20101018
  Receipt Date: 20101011
  Transmission Date: 20110411
  Serious: Yes (Other)
  Sender: FDA-Public Use
  Company Number: US-B.I. PHARMACEUTICALS,INC./RIDGEFIELD-2010-BP-11484BP

PATIENT
  Sex: Female

DRUGS (4)
  1. ZANTAC 75 [Suspect]
     Indication: GASTROOESOPHAGEAL REFLUX DISEASE
     Dosage: 75 MG
     Route: 048
     Dates: start: 20100901, end: 20100901
  2. ZYRTEC [Concomitant]
     Indication: MULTIPLE ALLERGIES
  3. NASONEX [Concomitant]
     Indication: MULTIPLE ALLERGIES
  4. FLOVENT [Concomitant]
     Indication: ASTHMA

REACTIONS (2)
  - DYSPHAGIA [None]
  - DYSPNOEA [None]
